FAERS Safety Report 5162092-4 (Version None)
Quarter: 2006Q4

REPORT INFORMATION
  Report Type: 
  Country: None (occurrence: None)
  Receive Date: 20061121
  Receipt Date: 20061110
  Transmission Date: 20070319
  Serious: Yes (Other)
  Sender: FDA-Public Use
  Company Number: 2006JP003455

PATIENT
  Age: 65 Year
  Sex: Female

DRUGS (10)
  1. PROGRAF [Suspect]
     Indication: RHEUMATOID ARTHRITIS
     Dosage: 1.5 MG, UID/QD, ORAL
     Route: 048
     Dates: start: 20060705, end: 20060807
  2. PREDNISOLONE [Suspect]
     Indication: RHEUMATOID ARTHRITIS
     Dosage: SEE IMAGE, ORAL
     Route: 048
     Dates: end: 20060103
  3. PREDNISOLONE [Suspect]
     Indication: RHEUMATOID ARTHRITIS
     Dosage: SEE IMAGE, ORAL
     Route: 048
     Dates: start: 20060104
  4. OPALMON             (LIMAPROST) [Suspect]
     Indication: LUMBAR SPINAL STENOSIS
     Dosage: 5 UG, TID, ORAL
     Route: 048
     Dates: start: 20060608, end: 20060807
  5. VOLTAREN            (DICLOFENAC) CAPSULE [Concomitant]
  6. AZULFIDINE EN TABLET [Concomitant]
  7. ALTAT             (ROXATIDINE ACETATE HYDRCHLORIDE) CAPSULE [Concomitant]
  8. BERIZYM            (ENZYMES NOS) GRANULE [Concomitant]
  9. MUCOSTA            (REBAMIPIDE) [Concomitant]
  10. INDACIN                         (INDOMETACIN) SUPPOSITORY [Concomitant]

REACTIONS (3)
  - BRONCHIECTASIS [None]
  - HAEMOPTYSIS [None]
  - PNEUMONIA [None]
